FAERS Safety Report 6562059-5 (Version None)
Quarter: 2010Q1

REPORT INFORMATION
  Report Type: 
  Country: None (occurrence: None)
  Receive Date: 20100130
  Receipt Date: 20091226
  Transmission Date: 20100710
  Serious: Yes (Hospitalization)
  Sender: FDA-Public Use
  Company Number: US-ABBOTT-09P-163-0602862-00

PATIENT
  Sex: Male
  Weight: 74.91 kg

DRUGS (5)
  1. HUMIRA [Suspect]
     Indication: PSORIASIS
     Dates: start: 20070101, end: 20070101
  2. HUMIRA [Suspect]
     Indication: PSORIASIS
     Dates: start: 20070101, end: 20090801
  3. OXYCODONE [Concomitant]
     Indication: PAIN
     Dosage: 5/325MG, 1-2 PILLS EVERY 4 HRS AS NEEDED
  4. LIDEX [Concomitant]
     Indication: PSORIASIS
     Route: 061
  5. TRIAMCINOLONE [Concomitant]
     Indication: PSORIASIS
     Route: 061

REACTIONS (6)
  - CONTUSION [None]
  - HAND FRACTURE [None]
  - INJECTION SITE PAIN [None]
  - PSORIASIS [None]
  - UPPER LIMB FRACTURE [None]
  - WRIST FRACTURE [None]
